FAERS Safety Report 8262137-9 (Version None)
Quarter: 2012Q2

REPORT INFORMATION
  Report Type: 
  Country: None (occurrence: None)
  Receive Date: 20120405
  Receipt Date: 20120330
  Transmission Date: 20120825
  Serious: Yes (Other)
  Sender: FDA-Public Use
  Company Number: SE-SANOFI-AVENTIS-2012SA022943

PATIENT
  Age: 63 Year
  Sex: Female

DRUGS (5)
  1. DOCETAXEL [Suspect]
     Route: 042
     Dates: start: 20110707, end: 20110707
  2. PRIMPERAN TAB [Concomitant]
  3. TRAMADOL HCL [Concomitant]
  4. LOPERAMIDE HCL [Concomitant]
  5. TRASTUZUMAB [Suspect]
     Route: 042
     Dates: start: 20110707, end: 20110707

REACTIONS (1)
  - OBSTRUCTIVE AIRWAYS DISORDER [None]
